FAERS Safety Report 7331377-5 (Version None)
Quarter: 2011Q1

REPORT INFORMATION
  Report Type: 
  Country: None (occurrence: None)
  Receive Date: 20110224
  Receipt Date: 20110210
  Transmission Date: 20110831
  Serious: Yes (Hospitalization)
  Sender: FDA-Public Use
  Company Number: 2011000685

PATIENT
  Age: 63 Year
  Sex: Female

DRUGS (1)
  1. TARCEVA [Suspect]
     Indication: LUNG NEOPLASM MALIGNANT
     Dosage: (150 MG,DAILY) , ORAL
     Route: 048
     Dates: start: 20080828, end: 20110114

REACTIONS (3)
  - DRUG INEFFECTIVE [None]
  - STENT PLACEMENT [None]
  - LUNG DISORDER [None]
